FAERS Safety Report 8816247 (Version 3)
Quarter: 2013Q2

REPORT INFORMATION
  Report Type: Report from Study
  Country: JP (occurrence: JP)
  Receive Date: 20120930
  Receipt Date: 20130522
  Transmission Date: 20140414
  Serious: Yes (Other)
  Sender: FDA-Public Use
  Company Number: JP-009507513-2012SP027850

PATIENT
  Age: 55 Year
  Sex: Male
  Weight: 84 kg

DRUGS (11)
  1. PEGINTRON [Suspect]
     Indication: CHRONIC HEPATITIS C
     Dosage: 1.5 MICROGRAM PER KILOGRAM, QW
     Route: 058
     Dates: start: 20120508, end: 20120508
  2. PEGINTRON [Suspect]
     Dosage: 1.5 MICROGRAM PER KILOGRAM, QW
     Dates: start: 20120612
  3. REBETOL [Suspect]
     Indication: CHRONIC HEPATITIS C
     Dosage: 1000 MG, QD
     Route: 048
     Dates: start: 20120508, end: 20120510
  4. REBETOL [Suspect]
     Dosage: 1000 MG, QD
     Route: 048
     Dates: start: 20120612, end: 20120716
  5. REBETOL [Suspect]
     Dosage: 600 MG, QD
     Route: 048
     Dates: start: 20120717
  6. TELAVIC [Suspect]
     Indication: CHRONIC HEPATITIS C
     Dosage: 2250 MG, QD
     Route: 048
     Dates: start: 20120508, end: 20120510
  7. LOXONIN [Suspect]
     Indication: PYREXIA
     Dosage: 180 MG, QD
     Route: 048
     Dates: start: 20120508
  8. MUCOSTA [Concomitant]
     Indication: PYREXIA
     Dosage: 300 MG, QD
     Route: 048
     Dates: start: 20120508
  9. EURASON [Concomitant]
     Indication: RASH
     Dosage: UNK UNK, PRN
     Route: 051
     Dates: start: 20120508, end: 20120612
  10. ALLEGRA [Concomitant]
     Indication: DRUG ERUPTION
     Dosage: 120 MG, QD
     Route: 048
     Dates: start: 20120510, end: 20120529
  11. [THERAPY UNSPECIFIED] [Concomitant]
     Indication: DRUG ERUPTION
     Dosage: FORMULATION: EXT, BID
     Route: 051
     Dates: start: 20120510, end: 20120529

REACTIONS (1)
  - Drug eruption [Recovered/Resolved]
